FAERS Safety Report 9230161 (Version 3)
Quarter: 2013Q2

REPORT INFORMATION
  Report Type: Spontaneous
  Country: CA (occurrence: CA)
  Receive Date: 20130415
  Receipt Date: 20130507
  Transmission Date: 20140414
  Serious: Yes (Other)
  Sender: FDA-Public Use
  Company Number: CA-JNJFOC-20130403373

PATIENT
  Age: 45 Year
  Sex: Male
  Weight: 99.79 kg

DRUGS (2)
  1. TYLENOL ARTHRITIS PAIN ER [Suspect]
     Route: 048
  2. TYLENOL ARTHRITIS PAIN ER [Suspect]
     Indication: PRODUCT USED FOR UNKNOWN INDICATION
     Dosage: ABOUT 100 CAPLET (POSSIBLY)
     Route: 048
     Dates: start: 20130404, end: 20130404

REACTIONS (2)
  - Suicide attempt [Recovered/Resolved]
  - Intentional overdose [Recovered/Resolved]
